FAERS Safety Report 8184654-2 (Version None)
Quarter: 2012Q1

REPORT INFORMATION
  Report Type: 
  Country: None (occurrence: None)
  Receive Date: 20120305
  Receipt Date: 20120301
  Transmission Date: 20120608
  Serious: Yes (Other)
  Sender: FDA-Public Use
  Company Number: JP-B.I. PHARMACEUTICALS,INC./RIDGEFIELD-2012-BP-03982NB

PATIENT

DRUGS (1)
  1. MICARDIS [Suspect]
     Route: 048

REACTIONS (1)
  - INTERSTITIAL LUNG DISEASE [None]
